FAERS Safety Report 14848164 (Version 2)
Quarter: 2018Q3

REPORT INFORMATION
  Report Type: Spontaneous
  Country: US (occurrence: US)
  Receive Date: 20180504
  Receipt Date: 20180705
  Transmission Date: 20181010
  Serious: Yes (Hospitalization)
  Sender: FDA-Public Use
  Company Number: US-SAOL THERAPEUTICS-2018SAO00655

PATIENT
  Age: 28 Year
  Sex: Male
  Weight: 67.12 kg

DRUGS (11)
  1. LIORESAL [Suspect]
     Active Substance: BACLOFEN
     Indication: MUSCLE SPASTICITY
     Dosage: 1493.4 ?G, \DAY
     Route: 037
  2. DULOXETINE. [Concomitant]
     Active Substance: DULOXETINE
     Dosage: 60 MG, 1X/DAY
     Route: 048
  3. MIRTAZAPINE. [Concomitant]
     Active Substance: MIRTAZAPINE
     Dosage: 15 MG, 1X/DAY AT BEDTIME
     Route: 048
  4. ZINC. [Concomitant]
     Active Substance: ZINC
     Dosage: 50 MG, 3X/DAY
     Route: 048
  5. CETIRIZINE [Concomitant]
     Active Substance: CETIRIZINE HYDROCHLORIDE
     Dosage: 10 MG, 1X/DAY
     Route: 048
  6. UNSPECIFIED MULTIVITAMIN [Concomitant]
     Dosage: 1 TABLETS, 1X/DAY
     Route: 048
  7. SENNA [Concomitant]
     Active Substance: SENNA LEAF\SENNOSIDES\SENNOSIDES A AND B
     Dosage: 8.6 MG, 1X/DAY EVERY 12 HOURS
  8. TRAZODONE [Concomitant]
     Active Substance: TRAZODONE HYDROCHLORIDE
     Dosage: 125 MG, 1X/DAY AT BEDTIME AS NEEDED
     Route: 048
  9. DOCUSATE SODIUM. [Concomitant]
     Active Substance: DOCUSATE SODIUM
     Dosage: 200 MG, 2X/DAY
     Route: 048
  10. TRETINOIN. [Concomitant]
     Active Substance: TRETINOIN
     Route: 061
  11. LIORESAL [Suspect]
     Active Substance: BACLOFEN
     Indication: SPINAL CORD INJURY

REACTIONS (4)
  - Muscle spasticity [Unknown]
  - Device infusion issue [Unknown]
  - Osteomyelitis [Unknown]
  - Wound [None]

NARRATIVE: CASE EVENT DATE: 20180328
